FAERS Safety Report 5701778-7 (Version None)
Quarter: 2008Q2

REPORT INFORMATION
  Report Type: 
  Country: None (occurrence: None)
  Receive Date: 20080410
  Receipt Date: 20080410
  Transmission Date: 20081010
  Serious: Yes (Other)
  Sender: FDA-Public Use
  Company Number: None

PATIENT
  Age: 15 Year
  Sex: Female
  Weight: 61.2356 kg

DRUGS (1)
  1. BOTOX [Suspect]
     Indication: MIGRAINE
     Dosage: X1 030 SEE REPORT
     Dates: start: 20080206

REACTIONS (3)
  - ACTIVITIES OF DAILY LIVING IMPAIRED [None]
  - BURNING SENSATION [None]
  - MIGRAINE [None]
